FAERS Safety Report 5943174-3 (Version None)
Quarter: 2008Q4

REPORT INFORMATION
  Report Type: 
  Country: None (occurrence: None)
  Receive Date: 20081106
  Receipt Date: 20081104
  Transmission Date: 20090506
  Serious: Yes (Hospitalization)
  Sender: FDA-Public Use
  Company Number: A0754818A

PATIENT
  Sex: Male

DRUGS (3)
  1. ADVAIR DISKUS 100/50 [Suspect]
     Dosage: 1PUFF TWICE PER DAY
     Route: 055
     Dates: start: 20070101
  2. SINGULAIR [Concomitant]
  3. PROAIR HFA [Concomitant]

REACTIONS (5)
  - BLEPHARITIS [None]
  - DRUG INEFFECTIVE [None]
  - DYSPNOEA [None]
  - INCREASED BRONCHIAL SECRETION [None]
  - UPPER RESPIRATORY TRACT CONGESTION [None]
